FAERS Safety Report 6420443-4 (Version None)
Quarter: 2009Q4

REPORT INFORMATION
  Report Type: 
  Country: None (occurrence: None)
  Receive Date: 20091021
  Receipt Date: 20090813
  Transmission Date: 20100525
  Serious: No
  Sender: FDA-Public Use
  Company Number: ALL1-2009-02307

PATIENT
  Age: 42 Year
  Sex: Female
  Weight: 83.9 kg

DRUGS (2)
  1. VYVANSE [Suspect]
     Indication: ATTENTION DEFICIT/HYPERACTIVITY DISORDER
     Dosage: 30 MG, 1X/DAY:QD, ORAL
     Route: 048
     Dates: start: 20090201
  2. LOESTRIN FE (ETHINYLESTRADIOL, FERROUS FUMARATE, NORETHISTERONE ACETAT [Concomitant]

REACTIONS (1)
  - ALOPECIA [None]
